FAERS Safety Report 6070009-3 (Version None)
Quarter: 2009Q1

REPORT INFORMATION
  Report Type: 
  Country: None (occurrence: None)
  Receive Date: 20090209
  Receipt Date: 20090128
  Transmission Date: 20090719
  Serious: Yes (Other)
  Sender: FDA-Public Use
  Company Number: PHHY2009FR03389

PATIENT
  Age: 87 Year
  Sex: Female

DRUGS (1)
  1. EXELON [Suspect]
     Indication: LACUNAR INFARCTION
     Dosage: 4.6 MG, QD
     Route: 062
     Dates: start: 20081024, end: 20081030

REACTIONS (2)
  - BURNS SECOND DEGREE [None]
  - POLYMORPHIC LIGHT ERUPTION [None]
